FAERS Safety Report 9778305 (Version 2)
Quarter: 2016Q1

REPORT INFORMATION
  Report Type: Spontaneous
  Country: US (occurrence: US)
  Receive Date: 20131223
  Receipt Date: 20160302
  Transmission Date: 20160526
  Serious: No
  Sender: FDA-Public Use
  Company Number: US-RB-061219-13

PATIENT
  Age: 1 Year
  Sex: Male
  Weight: 10.88 kg

DRUGS (1)
  1. CHILDRENS MUCINEX MINI-MELTS CHEST CONGESTION [Suspect]
     Active Substance: GUAIFENESIN
     Indication: PRODUCT USED FOR UNKNOWN INDICATION
     Dosage: 100MG. TOOK HALF A PACKET OF THE PRODUCT,FREQUENCY UNK
     Route: 048
     Dates: start: 20131217

REACTIONS (3)
  - Accidental exposure to product by child [Recovered/Resolved]
  - Epistaxis [Recovered/Resolved]
  - Product use issue [None]

NARRATIVE: CASE EVENT DATE: 20131217
